FAERS Safety Report 20627072 (Version 1)
Quarter: 2022Q1

REPORT INFORMATION
  Report Type: Spontaneous
  Country: US (occurrence: None)
  Receive Date: 20220323
  Receipt Date: 20220323
  Transmission Date: 20220423
  Serious: Yes (Death, Hospitalization)
  Sender: FDA-Public Use
  Company Number: None

PATIENT
  Sex: Male
  Weight: 113 kg

DRUGS (2)
  1. CARBOPLATIN [Suspect]
     Active Substance: CARBOPLATIN
  2. TAXOL [Concomitant]
     Active Substance: PACLITAXEL

REACTIONS (9)
  - Pneumonia pseudomonal [None]
  - Hypotension [None]
  - Atrial flutter [None]
  - Acute kidney injury [None]
  - Gastrointestinal anastomotic leak [None]
  - Anaemia [None]
  - Sepsis [None]
  - Hypernatraemia [None]
  - Respiratory failure [None]

NARRATIVE: CASE EVENT DATE: 20210921
